FAERS Safety Report 5849931-6 (Version None)
Quarter: 2008Q3

REPORT INFORMATION
  Report Type: 
  Country: None (occurrence: None)
  Receive Date: 20080819
  Receipt Date: 20080814
  Transmission Date: 20090109
  Serious: Yes (Hospitalization)
  Sender: FDA-Public Use
  Company Number: US-BRISTOL-MYERS SQUIBB COMPANY-14282826

PATIENT
  Age: 49 Year
  Sex: Male
  Weight: 100 kg

DRUGS (2)
  1. DASATINIB [Suspect]
     Indication: MALIGNANT HAEMANGIOPERICYTOMA METASTATIC
     Dosage: 70MG BID FROM 08JUL08-23JUL08, DOSE REDUCED TO 50MG BID FROM 23JUL08-27JUL08
     Route: 048
     Dates: start: 20080723, end: 20080727
  2. DASATINIB [Suspect]
     Indication: SARCOMA
     Dosage: 70MG BID FROM 08JUL08-23JUL08, DOSE REDUCED TO 50MG BID FROM 23JUL08-27JUL08
     Route: 048
     Dates: start: 20080723, end: 20080727

REACTIONS (5)
  - ABDOMINAL PAIN [None]
  - CONSTIPATION [None]
  - DEHYDRATION [None]
  - PERICARDIAL EFFUSION [None]
  - PLEURAL EFFUSION [None]
